FAERS Safety Report 8764509 (Version 1)
Quarter: 2012Q4

REPORT INFORMATION
  Report Type: 
  Country: US (occurrence: US)
  Receive Date: 20120831
  Receipt Date: 20120831
  Transmission Date: 20130627
  Serious: No
  Sender: FDA-Public Use
  Company Number: US-009507513-1208USA012039

PATIENT

DRUGS (1)
  1. PEGINTRON [Suspect]
     Indication: HEPATITIS C
     Dosage: 60 Microgram per sq meter, UNK
     Route: 058
     Dates: start: 201208

REACTIONS (1)
  - Neutropenia [Not Recovered/Not Resolved]
